FAERS Safety Report 8249875-9 (Version None)
Quarter: 2012Q2

REPORT INFORMATION
  Report Type: 
  Country: None (occurrence: None)
  Receive Date: 20120402
  Receipt Date: 20120326
  Transmission Date: 20120825
  Serious: Yes (Other)
  Sender: FDA-Public Use
  Company Number: PHEH2012US005375

PATIENT
  Sex: Male

DRUGS (5)
  1. ZOLOFT [Concomitant]
  2. ATIVAN [Concomitant]
  3. MULTI-VITAMINS [Concomitant]
  4. GILENYA [Suspect]
     Indication: MULTIPLE SCLEROSIS
     Dosage: 1 DF, QD
     Route: 048
     Dates: start: 20120301, end: 20120325
  5. NUVIGIL [Concomitant]

REACTIONS (9)
  - ABDOMINAL DISCOMFORT [None]
  - VISION BLURRED [None]
  - FATIGUE [None]
  - VISUAL IMPAIRMENT [None]
  - DIARRHOEA [None]
  - VITREOUS FLOATERS [None]
  - ASTHENIA [None]
  - HEADACHE [None]
  - MACULAR OEDEMA [None]
